FAERS Safety Report 18278870 (Version 1)
Quarter: 2020Q3

REPORT INFORMATION
  Report Type: Spontaneous
  Country: US (occurrence: US)
  Receive Date: 20200917
  Receipt Date: 20200917
  Transmission Date: 20201103
  Serious: Yes (Other)
  Sender: FDA-Public Use
  Company Number: US-PURDUE-USA-2020-0166623

PATIENT
  Age: 55 Year
  Sex: Male

DRUGS (4)
  1. OXYCODONE/ ACETAMINOPHEN TABLETS [Suspect]
     Active Substance: ACETAMINOPHEN\OXYCODONE HYDROCHLORIDE
     Indication: PRODUCT USED FOR UNKNOWN INDICATION
     Dosage: UNK
     Route: 048
  2. OXYCONTIN [Suspect]
     Active Substance: OXYCODONE HYDROCHLORIDE
     Dosage: 20 MG, UNK
     Route: 048
  3. OXYCODONE HYDROCHLORIDE (SIMILAR TO NDA 22?272) [Suspect]
     Active Substance: OXYCODONE HYDROCHLORIDE
     Indication: PRODUCT USED FOR UNKNOWN INDICATION
     Dosage: UNK
     Route: 048
  4. OXYCONTIN [Suspect]
     Active Substance: OXYCODONE HYDROCHLORIDE
     Indication: PRODUCT USED FOR UNKNOWN INDICATION
     Dosage: 80 MG, UNK
     Route: 048

REACTIONS (19)
  - Drug abuse [Unknown]
  - Chronic obstructive pulmonary disease [Unknown]
  - Cerebral disorder [Unknown]
  - Overdose [Unknown]
  - Respiratory disorder [Unknown]
  - Injury [Unknown]
  - Alcoholism [Unknown]
  - Tooth loss [Unknown]
  - Mental impairment [Unknown]
  - Blood testosterone decreased [Unknown]
  - Drug tolerance [Unknown]
  - Unevaluable event [Unknown]
  - Dental caries [Unknown]
  - General physical health deterioration [Unknown]
  - Anhedonia [Unknown]
  - Emotional distress [Unknown]
  - Tooth disorder [Unknown]
  - Depression [Unknown]
  - Drug dependence [Unknown]

NARRATIVE: CASE EVENT DATE: 20170821
